FAERS Safety Report 17777625 (Version 1)
Quarter: 2020Q2

REPORT INFORMATION
  Report Type: Spontaneous
  Country: US (occurrence: US)
  Receive Date: 20200513
  Receipt Date: 20200513
  Transmission Date: 20200714
  Serious: No
  Sender: FDA-Public Use
  Company Number: US-VANDA PHARMACEUTICALS, INC-2019ILOUS001758

PATIENT
  Age: 54 Year
  Sex: Female
  Weight: 75.37 kg

DRUGS (3)
  1. FANAPT [Suspect]
     Active Substance: ILOPERIDONE
     Indication: BIPOLAR DISORDER
     Dosage: 1 MG, BID
     Dates: start: 20190220
  2. VRAYLAR [Concomitant]
     Active Substance: CARIPRAZINE
     Indication: PRODUCT USED FOR UNKNOWN INDICATION
     Dosage: UNKNOWN, TITRATING OFF
  3. FANAPT [Suspect]
     Active Substance: ILOPERIDONE
     Dosage: 3 MG, BID
     Dates: end: 20190307

REACTIONS (1)
  - Diarrhoea [Recovered/Resolved]

NARRATIVE: CASE EVENT DATE: 20190220
